FAERS Safety Report 4976375-1 (Version None)
Quarter: 2006Q2

REPORT INFORMATION
  Report Type: 
  Country: None (occurrence: None)
  Receive Date: 20060412
  Receipt Date: 20060330
  Transmission Date: 20061013
  Serious: Yes (Hospitalization)
  Sender: FDA-Public Use
  Company Number: 2006045210

PATIENT
  Age: 58 Year
  Sex: Male
  Weight: 90 kg

DRUGS (10)
  1. SUTENT [Suspect]
     Indication: METASTATIC RENAL CELL CARCINOMA
     Dosage: 50 MG (50 MG, EVERYDAY), ORAL
     Route: 048
     Dates: start: 20060308, end: 20060327
  2. CYNT (MOXONIDINE) [Concomitant]
  3. ACERCOMP (HYDROCHOROTHIAZIDE4, LISINOPRIL) [Concomitant]
  4. NORVASC [Concomitant]
  5. METOPROLOL (METOPROLOL) [Concomitant]
  6. ALLOPURINOL (ALLIPURINOL) [Concomitant]
  7. FERRO SANOL (AMINOACETIC ACID, FERROUS SULFATE) [Concomitant]
  8. SELENIUM (SELENIUM) [Concomitant]
  9. VITAMIN B KOMPLEX  (CALCIUM PANTOTHENATE,NICOTINAMIDE, PYRIDOINE HDYRO [Concomitant]
  10. CIPROFLOXACIN [Concomitant]

REACTIONS (4)
  - FALL [None]
  - JAUNDICE [None]
  - PERFORMANCE STATUS DECREASED [None]
  - PYREXIA [None]
